FAERS Safety Report 18533893 (Version 1)
Quarter: 2020Q4

REPORT INFORMATION
  Report Type: Spontaneous
  Country: US (occurrence: US)
  Receive Date: 20201123
  Receipt Date: 20201123
  Transmission Date: 20210114
  Serious: No
  Sender: FDA-Public Use
  Company Number: US-BAYER-2020-251024

PATIENT
  Age: 20 Year
  Sex: Female

DRUGS (1)
  1. MIRENA [Suspect]
     Active Substance: LEVONORGESTREL
     Indication: CONTRACEPTION
     Dosage: 20 ?G PER DAY CONTINOUSLY
     Route: 015
     Dates: start: 20201113, end: 20201113

REACTIONS (4)
  - Procedural nausea [None]
  - Complication of device insertion [None]
  - Procedural pain [None]
  - Procedural dizziness [None]

NARRATIVE: CASE EVENT DATE: 20201113
